FAERS Safety Report 5880755-X (Version None)
Quarter: 2008Q3

REPORT INFORMATION
  Report Type: 
  Country: None (occurrence: None)
  Receive Date: 20080912
  Receipt Date: 20080602
  Transmission Date: 20090109
  Serious: No
  Sender: FDA-Public Use
  Company Number: US-ABBOTT-08P-163-0455981-00

PATIENT
  Sex: Female

DRUGS (1)
  1. HUMIRA [Suspect]
     Indication: CROHN'S DISEASE
     Dates: start: 20070601

REACTIONS (5)
  - ARTHRALGIA [None]
  - DYSPNOEA [None]
  - RASH [None]
  - SINUSITIS [None]
  - UPPER RESPIRATORY TRACT INFECTION [None]
